FAERS Safety Report 6483613-5 (Version None)
Quarter: 2009Q4

REPORT INFORMATION
  Report Type: 
  Country: None (occurrence: None)
  Receive Date: 20091209
  Receipt Date: 20091125
  Transmission Date: 20100525
  Serious: Yes (Hospitalization)
  Sender: FDA-Public Use
  Company Number: PHHY2009US51953

PATIENT
  Sex: Female

DRUGS (8)
  1. TEGRETOL [Suspect]
  2. OXCARBAZEPINE [Suspect]
  3. BETASERON [Suspect]
     Dosage: 8 MIU
     Dates: end: 20090817
  4. LYRICA [Suspect]
  5. PENICILLIN G PROCAINE [Suspect]
  6. CARBATROL [Suspect]
     Dosage: UNK
     Dates: end: 20090601
  7. DEPAKOTE [Suspect]
  8. EFFEXOR [Concomitant]
     Indication: DEPRESSION

REACTIONS (7)
  - DRUG HYPERSENSITIVITY [None]
  - RASH [None]
  - RENAL IMPAIRMENT [None]
  - SKIN BURNING SENSATION [None]
  - SKIN EXFOLIATION [None]
  - SKIN FISSURES [None]
  - SWELLING [None]
